FAERS Safety Report 7718090-7 (Version None)
Quarter: 2011Q3

REPORT INFORMATION
  Report Type: 
  Country: None (occurrence: None)
  Receive Date: 20110830
  Receipt Date: 20110822
  Transmission Date: 20111222
  Serious: Yes (Hospitalization)
  Sender: FDA-Public Use
  Company Number: US-JNJFOC-20110604290

PATIENT
  Sex: Female
  Weight: 72.58 kg

DRUGS (6)
  1. EVOXAC [Concomitant]
     Route: 065
  2. ESTRADERM [Concomitant]
     Dosage: 0.05G/24
     Route: 065
  3. REMICADE [Suspect]
     Indication: RHEUMATOID ARTHRITIS
     Route: 042
     Dates: start: 20071207, end: 20100113
  4. DARVOCET [Concomitant]
     Dosage: 1.2 FO 6 PRN
     Route: 065
  5. PREVACID [Concomitant]
     Indication: GASTROOESOPHAGEAL REFLUX DISEASE
     Route: 048
  6. LIPITOR [Concomitant]
     Indication: BLOOD CHOLESTEROL ABNORMAL
     Dates: start: 20050101

REACTIONS (2)
  - DIVERTICULITIS [None]
  - COLONOSCOPY [None]
